FAERS Safety Report 4515154-6 (Version None)
Quarter: 2004Q4

REPORT INFORMATION
  Report Type: 
  Country: None (occurrence: None)
  Receive Date: 20041126
  Receipt Date: 20041115
  Transmission Date: 20050328
  Serious: Yes (Hospitalization)
  Sender: FDA-Public Use
  Company Number: 200410590BFR

PATIENT
  Age: 75 Year
  Sex: Female

DRUGS (11)
  1. ADALATE LP (NIFEDIPINE) [Suspect]
     Dosage: 40 MG, TOTAL DAILY, ORAL
     Route: 048
  2. PREDNISONE [Suspect]
     Dosage: 4MG, TOTAL DAILY, ORAL
     Route: 048
  3. HUMIRA [Suspect]
     Indication: RHEUMATOID ARTHRITIS
     Dosage: 40 MG, TOTAL DAILY, SUBCUTANEOUS
     Route: 058
     Dates: start: 20040201, end: 20040702
  4. LASIX [Suspect]
     Dosage: 40 MG, TOTAL DAILY, ORAL
     Route: 048
  5. AZATHIOPRINE [Suspect]
     Indication: RHEUMATOID ARTHRITIS
     Dosage: 120 MG, TOTAL DAILY, ORAL
     Route: 048
  6. ASPEGIC BABY [Suspect]
     Dosage: ORAL
     Route: 048
  7. LEVOTHYROX [Concomitant]
  8. LIPANTHYL [Concomitant]
  9. OMEPRAZOLE [Concomitant]
  10. OROCAL [Concomitant]
  11. DUPHALAC [Concomitant]

REACTIONS (4)
  - BRONCHIAL INFECTION [None]
  - CONDITION AGGRAVATED [None]
  - HYPOXIA [None]
  - PULMONARY FIBROSIS [None]
